FAERS Safety Report 20032778 (Version 1)
Quarter: 2021Q4

REPORT INFORMATION
  Report Type: Spontaneous
  Country: GB (occurrence: GB)
  Receive Date: 20211104
  Receipt Date: 20211104
  Transmission Date: 20220303
  Serious: Yes (Life-Threatening, Hospitalization, Other)
  Sender: FDA-Public Use
  Company Number: GB-ABBVIE-21K-167-4145734-00

PATIENT
  Age: 31 Year
  Sex: Male

DRUGS (2)
  1. VALPROATE SODIUM [Suspect]
     Active Substance: VALPROATE SODIUM
     Indication: Psychotic disorder
     Route: 048
     Dates: start: 20170101
  2. ZUCLOPENTHIXOL HYDROCHLORIDE [Suspect]
     Active Substance: ZUCLOPENTHIXOL HYDROCHLORIDE
     Indication: Psychotic disorder
     Route: 051
     Dates: start: 20190701

REACTIONS (4)
  - Thirst [Recovering/Resolving]
  - Circulatory collapse [Recovering/Resolving]
  - Blood sodium decreased [Recovering/Resolving]
  - Dyspnoea [Recovering/Resolving]
